FAERS Safety Report 4834568-8 (Version None)
Quarter: 2005Q4

REPORT INFORMATION
  Report Type: 
  Country: None (occurrence: None)
  Receive Date: 20051122
  Receipt Date: 20050401
  Transmission Date: 20060501
  Serious: No
  Sender: FDA-Public Use
  Company Number: US-BRISTOL-MYERS SQUIBB COMPANY-12918215

PATIENT
  Age: 62 Year
  Sex: Male
  Weight: 76 kg

DRUGS (1)
  1. PRAVACHOL [Suspect]
     Dates: start: 20050101, end: 20050326

REACTIONS (2)
  - SWELLING FACE [None]
  - SWOLLEN TONGUE [None]
